FAERS Safety Report 4994214-X (Version None)
Quarter: 2006Q2

REPORT INFORMATION
  Report Type: 
  Country: None (occurrence: None)
  Receive Date: 20060505
  Receipt Date: 20060427
  Transmission Date: 20061013
  Serious: Yes (Hospitalization, Other)
  Sender: FDA-Public Use
  Company Number: US-BRISTOL-MYERS SQUIBB COMPANY-13358551

PATIENT
  Age: 37 Year
  Sex: Female

DRUGS (15)
  1. CARBOPLATIN [Suspect]
     Indication: OVARIAN CANCER
     Route: 042
     Dates: start: 20051207, end: 20051207
  2. HEPARIN [Concomitant]
     Indication: CATHETER PLACEMENT
     Route: 042
     Dates: start: 20050621
  3. OXYCODONE [Concomitant]
     Indication: BREAKTHROUGH PAIN
     Route: 048
     Dates: start: 20051119
  4. ANZEMET [Concomitant]
     Indication: PROPHYLAXIS OF NAUSEA AND VOMITING
     Route: 048
     Dates: start: 20051208, end: 20051211
  5. PHENERGAN HCL [Concomitant]
  6. LEXAPRO [Concomitant]
     Indication: DEPRESSION
     Route: 047
     Dates: start: 20051211
  7. MEGESTROL [Concomitant]
     Indication: INCREASED APPETITE
     Route: 048
     Dates: start: 20051207
  8. DEXAMETHASONE [Concomitant]
     Indication: PROPHYLAXIS OF NAUSEA AND VOMITING
     Route: 048
     Dates: start: 20051208, end: 20051211
  9. TPN [Concomitant]
     Indication: NUTRITIONAL SUPPORT
     Route: 042
     Dates: start: 20051208
  10. NACL INFUSION [Concomitant]
     Indication: FLUID REPLACEMENT
     Route: 042
     Dates: start: 20051207, end: 20051207
  11. 5% DEXTROSE/WATER [Concomitant]
     Route: 042
     Dates: start: 20051207, end: 20051207
  12. PROMETHAZINE [Concomitant]
     Indication: VOMITING
     Route: 048
     Dates: start: 20051124
  13. LORAZEPAM [Concomitant]
     Indication: ANXIETY
     Route: 048
     Dates: start: 20051110
  14. ESCITALOPRAM OXALATE [Concomitant]
     Indication: ANTIDEPRESSANT THERAPY
     Route: 048
     Dates: start: 20051211
  15. DOLASETRON MESILATE [Concomitant]
     Indication: PROPHYLAXIS OF NAUSEA AND VOMITING
     Route: 042
     Dates: start: 20051207, end: 20051207

REACTIONS (1)
  - SMALL INTESTINAL OBSTRUCTION [None]
